FAERS Safety Report 5099363-6 (Version None)
Quarter: 2006Q3

REPORT INFORMATION
  Report Type: 
  Country: None (occurrence: None)
  Receive Date: 20060731
  Receipt Date: 20060601
  Transmission Date: 20061208
  Serious: No
  Sender: FDA-Public Use
  Company Number: 2006PV014866

PATIENT
  Age: 64 Year
  Sex: Female

DRUGS (2)
  1. BYETTA [Suspect]
     Indication: DRUG USE FOR UNKNOWN INDICATION
     Dosage: SEE IMAGE
     Route: 058
     Dates: start: 20060101, end: 20060401
  2. BYETTA [Suspect]
     Indication: DRUG USE FOR UNKNOWN INDICATION
     Dosage: SEE IMAGE
     Route: 058
     Dates: start: 20060430

REACTIONS (3)
  - NAUSEA [None]
  - SOMNOLENCE [None]
  - WEIGHT DECREASED [None]
